FAERS Safety Report 5995982-0 (Version None)
Quarter: 2008Q4

REPORT INFORMATION
  Report Type: 
  Country: None (occurrence: None)
  Receive Date: 20081212
  Receipt Date: 20081007
  Transmission Date: 20090506
  Serious: No
  Sender: FDA-Public Use
  Company Number: US-ABBOTT-08P-163-0480110-00

PATIENT
  Sex: Male
  Weight: 68.1 kg

DRUGS (5)
  1. HUMIRA [Suspect]
     Indication: CROHN'S DISEASE
     Route: 050
     Dates: start: 20081006
  2. PREDNISONE TAB [Concomitant]
     Indication: CROHN'S DISEASE
  3. PREDNISONE TAB [Concomitant]
  4. LIDODERM [Concomitant]
     Indication: PROPHYLAXIS
     Dosage: PRIOR TO HUMIRA INJECTION
     Route: 062
     Dates: start: 20080922
  5. LIDODERM [Concomitant]
     Indication: INJECTION SITE PAIN

REACTIONS (1)
  - INJECTION SITE PAIN [None]
